FAERS Safety Report 8905779 (Version 5)
Quarter: 2013Q3

REPORT INFORMATION
  Report Type: Spontaneous
  Country: US (occurrence: US)
  Receive Date: 20121113
  Receipt Date: 20130701
  Transmission Date: 20140515
  Serious: Yes (Hospitalization, Disabling, Other)
  Sender: FDA-Public Use
  Company Number: US-009507513-1211USA002197

PATIENT
  Sex: Female
  Weight: 56.24 kg

DRUGS (6)
  1. FOSAMAX [Suspect]
     Indication: OSTEOPOROSIS
     Dosage: 70 MG, QW
     Route: 048
     Dates: start: 2001, end: 200508
  2. BONIVA [Suspect]
     Indication: OSTEOPOROSIS
     Dosage: 150 MG, QM
     Route: 048
     Dates: start: 200508, end: 201003
  3. ACTONEL [Suspect]
     Indication: OSTEOPOROSIS
     Dosage: 150 MG, UNK
     Route: 048
     Dates: start: 20100318, end: 201102
  4. GINKGO [Concomitant]
     Dosage: 120 MG, UNK
     Route: 048
  5. CALCIUM (UNSPECIFIED) [Concomitant]
     Dosage: 500 MG, UNK
     Route: 048
  6. ONE-A-DAY ESSENTIAL VITAMINS [Concomitant]
     Route: 048

REACTIONS (29)
  - Femur fracture [Unknown]
  - Femur fracture [Unknown]
  - Intramedullary rod insertion [Unknown]
  - Open reduction of fracture [Unknown]
  - Femur fracture [Unknown]
  - Device failure [Unknown]
  - Medical device removal [Unknown]
  - Fall [Unknown]
  - Anxiety [Unknown]
  - Fibula fracture [Recovering/Resolving]
  - Fall [Unknown]
  - Blood cholesterol increased [Unknown]
  - Foot operation [Unknown]
  - Temporomandibular joint syndrome [Unknown]
  - Tooth abscess [Unknown]
  - Granuloma [Unknown]
  - Laryngitis [Unknown]
  - Osteoarthritis [Unknown]
  - Fracture nonunion [Unknown]
  - Urinary retention [Unknown]
  - Mucosal ulceration [Not Recovered/Not Resolved]
  - Pharyngeal abscess [Recovered/Resolved]
  - Nasal polyps [Unknown]
  - Device failure [Unknown]
  - Medical device removal [Unknown]
  - Soft tissue mass [Unknown]
  - Pain in extremity [Unknown]
  - Oedema peripheral [Unknown]
  - Gastrooesophageal reflux disease [Unknown]
